FAERS Safety Report 4629376-7 (Version None)
Quarter: 2005Q2

REPORT INFORMATION
  Report Type: 
  Country: None (occurrence: None)
  Receive Date: 20050405
  Receipt Date: 20050330
  Transmission Date: 20051028
  Serious: Yes (Disabling)
  Sender: FDA-Public Use
  Company Number: GBWYE544230MAR05

PATIENT
  Age: 44 Year
  Sex: Female

DRUGS (4)
  1. EFFEXOR [Suspect]
     Indication: ANXIETY
     Dosage: 187.5 MG/DAY; SEE IMAGE
     Route: 048
     Dates: end: 20040901
  2. EFFEXOR [Suspect]
     Indication: DEPRESSION
     Dosage: 187.5 MG/DAY; SEE IMAGE
     Route: 048
     Dates: end: 20040901
  3. EFFEXOR [Suspect]
     Indication: ANXIETY
     Dosage: 187.5 MG/DAY; SEE IMAGE
     Route: 048
     Dates: start: 20020111
  4. EFFEXOR [Suspect]
     Indication: DEPRESSION
     Dosage: 187.5 MG/DAY; SEE IMAGE
     Route: 048
     Dates: start: 20020111

REACTIONS (5)
  - ABNORMAL DREAMS [None]
  - APATHY [None]
  - DEPRESSED MOOD [None]
  - DRUG WITHDRAWAL SYNDROME [None]
  - NIGHT SWEATS [None]
